FAERS Safety Report 9099377 (Version 2)
Quarter: 2013Q2

REPORT INFORMATION
  Report Type: Spontaneous
  Country: US (occurrence: US)
  Receive Date: 20130214
  Receipt Date: 20130418
  Transmission Date: 20140414
  Serious: No
  Sender: FDA-Public Use
  Company Number: US-BAYER-2013-019191

PATIENT
  Age: 64 Year
  Sex: Female

DRUGS (2)
  1. CLIMARA [Suspect]
     Dosage: UNK
     Route: 062
  2. ESTRADIOL HEMIHYDRATE [Suspect]
     Dosage: 25 MG, UNK

REACTIONS (5)
  - Migraine [None]
  - Nausea [None]
  - Migraine [None]
  - Nausea [None]
  - Feeling abnormal [None]
